FAERS Safety Report 22138264 (Version 2)
Quarter: 2023Q2

REPORT INFORMATION
  Report Type: Spontaneous
  Country: NL (occurrence: NL)
  Receive Date: 20230325
  Receipt Date: 20230407
  Transmission Date: 20230722
  Serious: Yes (Other)
  Sender: FDA-Public Use
  Company Number: NL-MACLEODS PHARMACEUTICALS US LTD-MAC2023040441

PATIENT

DRUGS (2)
  1. VENLAFAXINE [Suspect]
     Active Substance: VENLAFAXINE HYDROCHLORIDE
     Indication: Depressive symptom
     Dosage: 75 MILLIGRAM (STOP DATE: ON AN UNKNOWN DATE IN 2008)
     Route: 065
     Dates: start: 2002, end: 2008
  2. VENLAFAXINE [Suspect]
     Active Substance: VENLAFAXINE HYDROCHLORIDE
     Indication: Burnout syndrome
     Dosage: 37.5 MILLIGRAM
     Route: 065
     Dates: start: 2008, end: 2008

REACTIONS (11)
  - Erectile dysfunction [Unknown]
  - Hypertonic bladder [Unknown]
  - Urinary incontinence [Unknown]
  - Sexual dysfunction [Unknown]
  - Antidepressant discontinuation syndrome [Unknown]
  - Penis disorder [Unknown]
  - Anorgasmia [Unknown]
  - Ejaculation delayed [Unknown]
  - Libido decreased [Unknown]
  - Electric shock sensation [Unknown]
  - Hyperhidrosis [Unknown]
